FAERS Safety Report 8846530 (Version 1)
Quarter: 2012Q4

REPORT INFORMATION
  Report Type: 
  Country: US (occurrence: US)
  Receive Date: 20121017
  Receipt Date: 20121017
  Transmission Date: 20130627
  Serious: Yes (Other)
  Sender: FDA-Public Use
  Company Number: US-GLAXOSMITHKLINE-A0832730A

PATIENT
  Sex: Male

DRUGS (1)
  1. AVANDIA [Suspect]
     Indication: PRODUCT USED FOR UNKNOWN INDICATION
     Dosage: 4MG Unknown
     Route: 065
     Dates: start: 20001031, end: 20010331

REACTIONS (4)
  - Cardiac failure congestive [Unknown]
  - Cardiovascular disorder [Unknown]
  - Injury [Unknown]
  - Cardiac disorder [Unknown]
